FAERS Safety Report 7668681-7 (Version None)
Quarter: 2011Q3

REPORT INFORMATION
  Report Type: 
  Country: None (occurrence: None)
  Receive Date: 20110808
  Receipt Date: 20110725
  Transmission Date: 20111222
  Serious: Yes (Other)
  Sender: FDA-Public Use
  Company Number: BR-GENZYME-POMP-1001677

PATIENT
  Age: 48 Year
  Sex: Female

DRUGS (1)
  1. MYOZYME [Suspect]
     Indication: GLYCOGEN STORAGE DISEASE TYPE II
     Dosage: UNK UNK, UNK
     Route: 042

REACTIONS (4)
  - DYSPNOEA [None]
  - URTICARIA [None]
  - RASH GENERALISED [None]
  - PULMONARY CONGESTION [None]
